FAERS Safety Report 10086801 (Version 2)
Quarter: 2014Q2

REPORT INFORMATION
  Report Type: Spontaneous
  Country: US (occurrence: US)
  Receive Date: 20140418
  Receipt Date: 20140509
  Transmission Date: 20141212
  Serious: Yes (Death, Hospitalization, Other)
  Sender: FDA-Public Use
  Company Number: US-JNJFOC-20140412792

PATIENT
  Age: 72 Year
  Sex: Male
  Weight: 83.1 kg

DRUGS (13)
  1. GLIPIZIDE [Concomitant]
     Indication: BLOOD GLUCOSE ABNORMAL
     Route: 048
  2. IMBRUVICA [Suspect]
     Indication: MANTLE CELL LYMPHOMA
     Route: 048
     Dates: start: 20140310, end: 20140317
  3. IMBRUVICA [Suspect]
     Indication: MANTLE CELL LYMPHOMA
     Route: 048
     Dates: start: 20131209, end: 20140306
  4. ACYCLOVIR [Concomitant]
     Route: 048
  5. ASPIRIN [Concomitant]
     Route: 048
  6. DOCUSATE SODIUM [Concomitant]
     Route: 048
  7. MULTIVITAMINS [Concomitant]
     Route: 048
  8. VITAMIN D3 [Concomitant]
     Route: 048
  9. ACETAMINOPHEN [Concomitant]
     Route: 048
  10. ALPRAZOLAM [Concomitant]
     Route: 048
  11. HYDROMORPHONE [Concomitant]
     Indication: PAIN
     Route: 048
  12. QUININE SULFATE [Concomitant]
     Indication: MUSCLE SPASMS
     Route: 048
  13. ATENOLOL [Concomitant]
     Route: 048

REACTIONS (9)
  - Disease progression [Fatal]
  - Headache [Recovering/Resolving]
  - Vision blurred [Recovering/Resolving]
  - Cold sweat [Recovering/Resolving]
  - Dysarthria [Recovering/Resolving]
  - Dizziness [Recovering/Resolving]
  - Asthenia [Recovering/Resolving]
  - Dyspnoea [Unknown]
  - Productive cough [Recovering/Resolving]
